FAERS Safety Report 10270399 (Version 4)
Quarter: 2015Q1

REPORT INFORMATION
  Report Type: Spontaneous
  Country: US (occurrence: US)
  Receive Date: 20140701
  Receipt Date: 20150127
  Transmission Date: 20150720
  Serious: Yes (Life-Threatening, Hospitalization)
  Sender: FDA-Public Use
  Company Number: US-BAYER-2014-097755

PATIENT
  Age: 21 Year
  Sex: Female
  Weight: 56.69 kg

DRUGS (5)
  1. DOXYCYCLINE HYCLATE. [Concomitant]
     Active Substance: DOXYCYCLINE HYCLATE
     Dosage: 100 MG, UNK
  2. MIRENA [Suspect]
     Active Substance: LEVONORGESTREL
     Indication: CONTRACEPTION
     Dosage: 20 MCG/24HR, CONT
     Route: 015
     Dates: start: 20071115, end: 20130110
  3. BUPROPION [Concomitant]
     Active Substance: BUPROPION
     Indication: DEPRESSION
     Dosage: UNK
     Dates: start: 2011
  4. BUPROPION [Concomitant]
     Active Substance: BUPROPION
     Indication: ANXIETY
  5. HYDROCODONE/ACETAMINOPHEN [Concomitant]
     Active Substance: ACETAMINOPHEN\HYDROCODONE
     Dosage: 5/500 MG

REACTIONS (14)
  - Anhedonia [None]
  - Infection [None]
  - Device breakage [None]
  - Pregnancy with contraceptive device [None]
  - Abdominal pain lower [None]
  - Device misuse [None]
  - Abdominal pain [None]
  - Emotional distress [None]
  - Injury [None]
  - General physical health deterioration [None]
  - Uterine perforation [None]
  - Anxiety [None]
  - Menorrhagia [None]
  - Drug ineffective [None]

NARRATIVE: CASE EVENT DATE: 20120308
